FAERS Safety Report 16641878 (Version 1)
Quarter: 2019Q3

REPORT INFORMATION
  Report Type: Spontaneous
  Country: US (occurrence: US)
  Receive Date: 20190726
  Receipt Date: 20190726
  Transmission Date: 20191004
  Serious: Yes (Other)
  Sender: FDA-Public Use
  Company Number: None

PATIENT
  Age: 60 Year
  Sex: Female
  Weight: 67.5 kg

DRUGS (2)
  1. SPRAVATO [Suspect]
     Active Substance: ESKETAMINE
     Indication: DRUG RESISTANCE
     Dosage: ?          OTHER FREQUENCY:ONCE;?
     Route: 045
     Dates: start: 20190725, end: 20190725
  2. SPRAVATO [Suspect]
     Active Substance: ESKETAMINE
     Indication: DEPRESSION
     Dosage: ?          OTHER FREQUENCY:ONCE;?
     Route: 045
     Dates: start: 20190725, end: 20190725

REACTIONS (4)
  - Nausea [None]
  - Insomnia [None]
  - Feeling abnormal [None]
  - Vomiting [None]

NARRATIVE: CASE EVENT DATE: 20190725
